FAERS Safety Report 7222151-9 (Version None)
Quarter: 2011Q1

REPORT INFORMATION
  Report Type: 
  Country: None (occurrence: None)
  Receive Date: 20110112
  Receipt Date: 20110106
  Transmission Date: 20110831
  Serious: Yes (Death, Other)
  Sender: FDA-Public Use
  Company Number: PHEH2009US02564

PATIENT
  Sex: Female

DRUGS (22)
  1. FASLODEX [Concomitant]
     Indication: BREAST CANCER
  2. GLUCOPHAGE [Concomitant]
  3. CYTOXAN [Concomitant]
     Indication: BREAST CANCER
  4. ADRIAMYCIN PFS [Concomitant]
     Indication: BREAST CANCER
  5. AREDIA [Suspect]
  6. GLUCOVANCE [Concomitant]
  7. TAMOXIFEN CITRATE [Concomitant]
     Indication: BREAST CANCER
  8. OXYCONTIN [Concomitant]
  9. LETROZOLE [Concomitant]
  10. ADVIL                              /00044201/ [Concomitant]
  11. ELOCON [Concomitant]
     Indication: FUNGAL INFECTION
  12. 5-FU [Concomitant]
     Indication: BREAST CANCER
  13. TAXOL [Concomitant]
  14. ARANESP [Concomitant]
  15. ZOCOR [Concomitant]
  16. OXYCODONE [Concomitant]
  17. ZOMETA [Suspect]
  18. VIOXX [Concomitant]
  19. EXEMESTANE [Concomitant]
  20. TAXOTERE [Concomitant]
  21. XELODA [Concomitant]
  22. PROCRIT                            /00909301/ [Concomitant]

REACTIONS (88)
  - PAIN [None]
  - DECREASED INTEREST [None]
  - DENTAL FISTULA [None]
  - NEUTROPENIA [None]
  - ARTHRALGIA [None]
  - RADIUS FRACTURE [None]
  - LUMBAR RADICULOPATHY [None]
  - HOT FLUSH [None]
  - CATARACT [None]
  - NAUSEA [None]
  - HERPES ZOSTER [None]
  - BONE DISORDER [None]
  - PARAESTHESIA [None]
  - IMPAIRED HEALING [None]
  - MUSCULOSKELETAL DISORDER [None]
  - ERYTHEMA [None]
  - CANDIDIASIS [None]
  - OSTEOPENIA [None]
  - ATRIAL FIBRILLATION [None]
  - CYSTITIS HAEMORRHAGIC [None]
  - NECK PAIN [None]
  - VERTIGO [None]
  - GENERAL PHYSICAL HEALTH DETERIORATION [None]
  - STAPHYLOCOCCAL INFECTION [None]
  - NEPHROLITHIASIS [None]
  - PERIARTHRITIS [None]
  - SCIATICA [None]
  - MENISCUS LESION [None]
  - PUBIS FRACTURE [None]
  - HYPERCHOLESTEROLAEMIA [None]
  - PANCREATIC ATROPHY [None]
  - OTITIS EXTERNA [None]
  - DEATH [None]
  - JAW FRACTURE [None]
  - BACK PAIN [None]
  - THROMBOCYTOPENIA [None]
  - FATIGUE [None]
  - FALL [None]
  - SYNOVIAL CYST [None]
  - PATELLA FRACTURE [None]
  - NEURALGIA [None]
  - OSTEONECROSIS OF JAW [None]
  - ANXIETY [None]
  - EAR INFECTION [None]
  - NIGHT SWEATS [None]
  - ASTHENIA [None]
  - WEIGHT DECREASED [None]
  - MUSCULOSKELETAL PAIN [None]
  - CONTUSION [None]
  - PERIOSTITIS [None]
  - CEREBRAL ATROPHY [None]
  - NEURITIS [None]
  - OSTEOMYELITIS [None]
  - METASTASES TO BONE [None]
  - METASTASES TO SPINE [None]
  - BURSITIS [None]
  - TENDONITIS [None]
  - CYST [None]
  - STRESS FRACTURE [None]
  - CERVICAL SPINAL STENOSIS [None]
  - PAIN IN EXTREMITY [None]
  - DIZZINESS [None]
  - WOUND DEHISCENCE [None]
  - ANAEMIA [None]
  - DECREASED APPETITE [None]
  - ROTATOR CUFF SYNDROME [None]
  - HYPOAESTHESIA [None]
  - PELVIC HAEMATOMA [None]
  - FRACTURED SACRUM [None]
  - RADICULOPATHY [None]
  - DEEP VEIN THROMBOSIS [None]
  - POST HERPETIC NEURALGIA [None]
  - ABSCESS JAW [None]
  - ACTINOMYCOSIS [None]
  - BONE PAIN [None]
  - LUMBAR SPINAL STENOSIS [None]
  - MEMORY IMPAIRMENT [None]
  - PYREXIA [None]
  - BONE NEOPLASM [None]
  - PATHOLOGICAL FRACTURE [None]
  - CARPAL TUNNEL SYNDROME [None]
  - SPINAL OSTEOARTHRITIS [None]
  - MASS [None]
  - PSORIASIS [None]
  - URETHRAL CARUNCLE [None]
  - CYSTITIS KLEBSIELLA [None]
  - HYDRONEPHROSIS [None]
  - SWELLING [None]
